FAERS Safety Report 6462578-6 (Version None)
Quarter: 2009Q4

REPORT INFORMATION
  Report Type: 
  Country: None (occurrence: None)
  Receive Date: 20091130
  Receipt Date: 20091116
  Transmission Date: 20100525
  Serious: Yes (Hospitalization, Other)
  Sender: FDA-Public Use
  Company Number: CH-MYLANLABS-2009S1019783

PATIENT
  Age: 61 Year
  Sex: Female

DRUGS (5)
  1. PAMIDRONIC ACID [Suspect]
     Indication: OSTEOPOROSIS
  2. PREDNISONE [Suspect]
     Indication: RENAL TRANSPLANT
     Route: 048
  3. ESOMEPRAZOLE [Suspect]
     Indication: GASTROOESOPHAGEAL REFLUX DISEASE
  4. ESTRADIOL [Suspect]
     Indication: HORMONE REPLACEMENT THERAPY
     Route: 062
  5. METHOTREXATE [Concomitant]
     Indication: RENAL TRANSPLANT

REACTIONS (1)
  - FEMUR FRACTURE [None]
